FAERS Safety Report 23884996 (Version 2)
Quarter: 2024Q2

REPORT INFORMATION
  Report Type: Spontaneous
  Country: GR (occurrence: GR)
  Receive Date: 20240522
  Receipt Date: 20240610
  Transmission Date: 20240716
  Serious: Yes (Hospitalization)
  Sender: FDA-Public Use
  Company Number: GR-BoehringerIngelheim-2024-BI-028085

PATIENT

DRUGS (3)
  1. EMPAGLIFLOZIN [Suspect]
     Active Substance: EMPAGLIFLOZIN
     Indication: Ascites
  2. LINAGLIPTIN [Suspect]
     Active Substance: LINAGLIPTIN
     Indication: Hepatogenous diabetes
  3. METFORMIN [Concomitant]
     Active Substance: METFORMIN HYDROCHLORIDE
     Indication: Hepatogenous diabetes

REACTIONS (5)
  - Liver transplant [Unknown]
  - Weight decreased [Unknown]
  - Blood sodium increased [Unknown]
  - Urine sodium increased [Unknown]
  - Off label use [Unknown]
